FAERS Safety Report 12714160 (Version 1)
Quarter: 2016Q3

REPORT INFORMATION
  Report Type: Spontaneous
  Country: US (occurrence: US)
  Receive Date: 20160905
  Receipt Date: 20160905
  Transmission Date: 20161109
  Serious: No
  Sender: FDA-Public Use
  Company Number: US-JAZZ-2016-US-008696

PATIENT
  Sex: Female

DRUGS (39)
  1. LASIX [Concomitant]
     Active Substance: FUROSEMIDE
  2. MELATONIN [Concomitant]
     Active Substance: MELATONIN
  3. PROBIOTICA [Concomitant]
     Active Substance: PROBIOTICS NOS
  4. XYREM [Suspect]
     Active Substance: SODIUM OXYBATE
     Indication: NARCOLEPSY
     Dosage: 3 G, BID
     Route: 048
     Dates: start: 201409, end: 201410
  5. XYREM [Suspect]
     Active Substance: SODIUM OXYBATE
     Dosage: 3.5 G, BID
     Route: 048
     Dates: start: 201410, end: 2015
  6. GABAPENTIN. [Concomitant]
     Active Substance: GABAPENTIN
  7. GARLIC. [Concomitant]
     Active Substance: GARLIC
  8. LYSINE HYDROCHLORIDE [Concomitant]
     Active Substance: LYSINE HYDROCHLORIDE
  9. NOVOLOG [Concomitant]
     Active Substance: INSULIN ASPART
  10. NUVIGIL [Concomitant]
     Active Substance: ARMODAFINIL
  11. OXYBUTYNIN CHLORIDE. [Concomitant]
     Active Substance: OXYBUTYNIN CHLORIDE
  12. RANITIDINE. [Concomitant]
     Active Substance: RANITIDINE
  13. THERMAZENE [Concomitant]
     Active Substance: SILVER SULFADIAZINE
  14. VICODIN [Concomitant]
     Active Substance: ACETAMINOPHEN\HYDROCODONE BITARTRATE
  15. XYREM [Suspect]
     Active Substance: SODIUM OXYBATE
     Dosage: 2 G, QD
     Route: 048
     Dates: start: 201504
  16. ATENOLOL. [Concomitant]
     Active Substance: ATENOLOL
  17. LEVEMIR [Concomitant]
     Active Substance: INSULIN DETEMIR
  18. MAGNESIUM [Concomitant]
     Active Substance: MAGNESIUM
  19. ALOE VERA [Concomitant]
     Active Substance: ALOE VERA LEAF
  20. LIPITOR [Concomitant]
     Active Substance: ATORVASTATIN CALCIUM
  21. SINGULAIR [Concomitant]
     Active Substance: MONTELUKAST SODIUM
  22. LIDOCAINE. [Concomitant]
     Active Substance: LIDOCAINE
  23. OMEPRAZOLE. [Concomitant]
     Active Substance: OMEPRAZOLE
  24. VITAMIN B COMPLEX [Concomitant]
     Active Substance: CYANOCOBALAMIN\DEXPANTHENOL\NIACINAMIDE\PYRIDOXINE HYDROCHLORIDE\RIBOFLAVIN 5^-PHOSPHATE SODIUM\THIAMINE HYDROCHLORIDE\VITAMIN B COMPLEX
  25. VITAMIN C [Concomitant]
     Active Substance: ASCORBIC ACID
  26. LINZESS [Concomitant]
     Active Substance: LINACLOTIDE
  27. BENTYL [Concomitant]
     Active Substance: DICYCLOMINE HYDROCHLORIDE
  28. FLONASE [Concomitant]
     Active Substance: FLUTICASONE PROPIONATE
  29. MIRALAX [Concomitant]
     Active Substance: POLYETHYLENE GLYCOL 3350
  30. MULTIPLE VITAMINS [Concomitant]
     Active Substance: VITAMINS
  31. OYSTER SHELL CALCIUM [Concomitant]
     Active Substance: CALCIUM
  32. URSODIOL. [Concomitant]
     Active Substance: URSODIOL
  33. KLONOPIN [Concomitant]
     Active Substance: CLONAZEPAM
  34. CYMBALTA [Concomitant]
     Active Substance: DULOXETINE HYDROCHLORIDE
  35. DIOVAN [Concomitant]
     Active Substance: VALSARTAN
  36. VITAMIN D3 [Concomitant]
     Active Substance: CHOLECALCIFEROL
  37. NORCO [Concomitant]
     Active Substance: ACETAMINOPHEN\HYDROCODONE BITARTRATE
  38. POTASSIUM GLUCONATE [Concomitant]
     Active Substance: POTASSIUM GLUCONATE
  39. TURMERIC [Concomitant]
     Active Substance: TURMERIC

REACTIONS (1)
  - Irritable bowel syndrome [Unknown]
